FAERS Safety Report 16279289 (Version 1)
Quarter: 2019Q2

REPORT INFORMATION
  Report Type: Spontaneous
  Country: US (occurrence: US)
  Receive Date: 20190507
  Receipt Date: 20190507
  Transmission Date: 20190711
  Serious: No
  Sender: FDA-Public Use
  Company Number: US-TEVA-2019-US-1047735

PATIENT

DRUGS (1)
  1. CLONAZEPAM. [Suspect]
     Active Substance: CLONAZEPAM
     Route: 065

REACTIONS (6)
  - Headache [Unknown]
  - Feeling abnormal [Unknown]
  - Hypersomnia [Unknown]
  - Visual impairment [Unknown]
  - Drug ineffective [Unknown]
  - Hypoaesthesia [Unknown]
